FAERS Safety Report 4399748-7 (Version None)
Quarter: 2004Q3

REPORT INFORMATION
  Report Type: 
  Country: None (occurrence: None)
  Receive Date: 20040714
  Receipt Date: 20040702
  Transmission Date: 20050211
  Serious: Yes (Disabling)
  Sender: FDA-Public Use
  Company Number: 04P-122-0266372-00

PATIENT
  Age: 43 Year
  Sex: Female

DRUGS (1)
  1. MERIDIA [Suspect]
     Indication: OBESITY
     Dosage: 15 MG, 1 IN 1 D, PER ORAL
     Route: 048
     Dates: start: 20031015, end: 20031115

REACTIONS (3)
  - DYSGEUSIA [None]
  - HEADACHE [None]
  - PAROSMIA [None]
